FAERS Safety Report 6213885-3 (Version None)
Quarter: 2009Q2

REPORT INFORMATION
  Report Type: 
  Country: None (occurrence: None)
  Receive Date: 20090602
  Receipt Date: 20090602
  Transmission Date: 20091009
  Serious: Yes (Hospitalization)
  Sender: FDA-Public Use
  Company Number: None

PATIENT
  Age: 51 Year
  Sex: Male

DRUGS (1)
  1. VINBLASTINE SULFATE [Suspect]

REACTIONS (3)
  - BUNDLE BRANCH BLOCK RIGHT [None]
  - DRUG INEFFECTIVE [None]
  - TACHYCARDIA [None]
